FAERS Safety Report 17193448 (Version 2)
Quarter: 2020Q1

REPORT INFORMATION
  Report Type: Spontaneous
  Country: FI (occurrence: FI)
  Receive Date: 20191223
  Receipt Date: 20200131
  Transmission Date: 20200409
  Serious: Yes (Other)
  Sender: FDA-Public Use
  Company Number: FI-009507513-1912FIN009282

PATIENT
  Age: 70 Year
  Sex: Female

DRUGS (5)
  1. RAMIPRIL. [Concomitant]
     Active Substance: RAMIPRIL
     Dosage: 10 MILLIGRAM
  2. SIMVASTATIN. [Suspect]
     Active Substance: SIMVASTATIN
     Dosage: 20 MILLIGRAM, DISCONTINUED A MONTH EARLIER (UNKNOWN DATE)
     Route: 048
  3. ASPIRIN. [Concomitant]
     Active Substance: ASPIRIN
     Dosage: 100 MILLIGRAM
  4. PANTOPRAZOLE [Concomitant]
     Active Substance: PANTOPRAZOLE
     Dosage: 20 MILLIGRAM
  5. RAMIPRIL. [Concomitant]
     Active Substance: RAMIPRIL
     Dosage: THE DOSE WAS HALVED: 5 MG

REACTIONS (6)
  - Hypertension [Unknown]
  - Hypothyroidism [Unknown]
  - Gastric ulcer [Recovered/Resolved]
  - Peripheral arterial occlusive disease [Unknown]
  - Anaemia [Recovered/Resolved]
  - Skin warm [Unknown]
